FAERS Safety Report 8478181-2 (Version None)
Quarter: 2012Q2

REPORT INFORMATION
  Report Type: 
  Country: None (occurrence: None)
  Receive Date: 20120629
  Receipt Date: 20120626
  Transmission Date: 20120825
  Serious: Yes (Hospitalization, Other)
  Sender: FDA-Public Use
  Company Number: PHHY2011CA86995

PATIENT
  Sex: Male

DRUGS (4)
  1. AFINITOR [Suspect]
     Dosage: UNK
     Dates: end: 20120101
  2. SANDOSTATIN LAR [Suspect]
     Dosage: 40 MG, QMO
     Route: 030
  3. AFINITOR [Suspect]
     Indication: PANCREATIC NEUROENDOCRINE TUMOUR
     Dosage: 10 MG, QD
     Route: 048
     Dates: start: 20110712, end: 20111010
  4. SANDOSTATIN LAR [Suspect]
     Indication: PANCREATIC NEUROENDOCRINE TUMOUR METASTATIC
     Dosage: 30 MG, QMO
     Route: 030
     Dates: start: 20110831

REACTIONS (12)
  - BLOOD CREATINE PHOSPHOKINASE INCREASED [None]
  - LIGAMENT SPRAIN [None]
  - GAIT DISTURBANCE [None]
  - FEELING ABNORMAL [None]
  - FALL [None]
  - INJECTION SITE PAIN [None]
  - DIARRHOEA [None]
  - GENERAL PHYSICAL HEALTH DETERIORATION [None]
  - CONTUSION [None]
  - MALAISE [None]
  - ROAD TRAFFIC ACCIDENT [None]
  - POLYMYOSITIS [None]
